FAERS Safety Report 4302522-0 (Version None)
Quarter: 2004Q1

REPORT INFORMATION
  Report Type: 
  Country: None (occurrence: None)
  Receive Date: 20040220
  Receipt Date: 20040206
  Transmission Date: 20041129
  Serious: Yes (Other)
  Sender: FDA-Public Use
  Company Number: 2004001234

PATIENT
  Sex: Female

DRUGS (3)
  1. NEURONTIN [Suspect]
     Indication: TRIGEMINAL NEURALGIA
     Dosage: ORAL
     Route: 048
     Dates: start: 20030101, end: 20040201
  2. MULTIVITAMIN [Concomitant]
  3. CONJUGATED ESTROGENS [Concomitant]

REACTIONS (3)
  - PRURITUS [None]
  - RASH [None]
  - SKIN DISORDER [None]
